FAERS Safety Report 18232278 (Version 1)
Quarter: 2020Q3

REPORT INFORMATION
  Report Type: Spontaneous
  Country: US (occurrence: US)
  Receive Date: 20200903
  Receipt Date: 20200903
  Transmission Date: 20201103
  Serious: Yes (Hospitalization)
  Sender: FDA-Public Use
  Company Number: None

PATIENT
  Sex: Female

DRUGS (21)
  1. SMZ/TMP DS [Concomitant]
     Active Substance: SULFAMETHOXAZOLE\TRIMETHOPRIM
  2. PREMARIN VAG CRE [Concomitant]
  3. GLIPIZIDE ER [Concomitant]
     Active Substance: GLIPIZIDE
  4. XARELTO [Concomitant]
     Active Substance: RIVAROXABAN
  5. CEPHALEXIN. [Concomitant]
     Active Substance: CEPHALEXIN
  6. LEVOFLOXACIN. [Concomitant]
     Active Substance: LEVOFLOXACIN
  7. PANTOPRAZOLE [Concomitant]
     Active Substance: PANTOPRAZOLE
  8. REPATHA [Suspect]
     Active Substance: EVOLOCUMAB
     Indication: HYPERLIPIDAEMIA
     Dosage: OTHER DOSE:1 PEN;OTHER ROUTE:INJ?AS DIRECTED BY MD?
     Dates: start: 20180620
  9. BUPROPN HCL [Concomitant]
     Active Substance: BUPROPION HYDROCHLORIDE
  10. CLOPIDOGREL [Concomitant]
     Active Substance: CLOPIDOGREL BISULFATE
  11. DIAZEPAM. [Concomitant]
     Active Substance: DIAZEPAM
  12. HYDROCO/APAP [Concomitant]
     Active Substance: ACETAMINOPHEN\HYDROCODONE
  13. LANTUS SOLOS [Concomitant]
  14. PREDNISONE. [Concomitant]
     Active Substance: PREDNISONE
  15. AMLODIPINE [Concomitant]
     Active Substance: AMLODIPINE BESYLATE
  16. BACLOFEN. [Concomitant]
     Active Substance: BACLOFEN
  17. IRON [Concomitant]
     Active Substance: IRON
  18. CLONIDINE. [Concomitant]
     Active Substance: CLONIDINE
  19. HYDROCODONE BITARTRA [Concomitant]
  20. METOPRPL SUC. [Concomitant]
  21. TELMISARTAN. [Concomitant]
     Active Substance: TELMISARTAN

REACTIONS (1)
  - Therapy interrupted [None]
